FAERS Safety Report 7617788-9 (Version None)
Quarter: 2011Q3

REPORT INFORMATION
  Report Type: 
  Country: None (occurrence: None)
  Receive Date: 20110718
  Receipt Date: 20110711
  Transmission Date: 20111222
  Serious: Yes (Hospitalization, Other)
  Sender: FDA-Public Use
  Company Number: US-JNJFOC-20101005050

PATIENT
  Sex: Female

DRUGS (2)
  1. LEVAQUIN [Suspect]
     Indication: BRONCHITIS
     Route: 048
     Dates: start: 20060101, end: 20081231
  2. PREDNISONE [Suspect]
     Indication: RASH
     Route: 065

REACTIONS (5)
  - MENISCUS LESION [None]
  - TENDON RUPTURE [None]
  - DEPRESSION [None]
  - RASH [None]
  - ROTATOR CUFF SYNDROME [None]
